FAERS Safety Report 9808956 (Version 1)
Quarter: 2014Q1

REPORT INFORMATION
  Report Type: Spontaneous
  Country: US (occurrence: US)
  Receive Date: 20140110
  Receipt Date: 20140110
  Transmission Date: 20141002
  Serious: Yes (Congenital Anomaly, Other)
  Sender: FDA-Public Use
  Company Number: US-ABBVIE-14P-163-1186653-00

PATIENT
  Sex: Female

DRUGS (1)
  1. DEPAKOTE [Suspect]
     Indication: MATERNAL EXPOSURE TIMING UNSPECIFIED
     Route: 064

REACTIONS (23)
  - Pain [Unknown]
  - Cleft palate [Unknown]
  - Congenital jaw malformation [Unknown]
  - Tooth disorder [Unknown]
  - Congenital oral malformation [Unknown]
  - Ear malformation [Unknown]
  - Congenital pharyngeal anomaly [Unknown]
  - Developmental hip dysplasia [Unknown]
  - Developmental hip dysplasia [Unknown]
  - Congenital scoliosis [Unknown]
  - Activities of daily living impaired [Unknown]
  - Injury [Unknown]
  - Tension [Unknown]
  - Anhedonia [Unknown]
  - Loss of employment [Unknown]
  - Emotional distress [Unknown]
  - Foetal exposure during pregnancy [Unknown]
  - Intelligence test abnormal [Unknown]
  - Autism spectrum disorder [Unknown]
  - Autism spectrum disorder [Unknown]
  - Attention deficit/hyperactivity disorder [Unknown]
  - Oppositional defiant disorder [Unknown]
  - Activities of daily living impaired [Unknown]
